FAERS Safety Report 5053086-8 (Version None)
Quarter: 2006Q3

REPORT INFORMATION
  Report Type: 
  Country: None (occurrence: None)
  Receive Date: 20060717
  Receipt Date: 20060710
  Transmission Date: 20061208
  Serious: Yes (Hospitalization)
  Sender: FDA-Public Use
  Company Number: AU-BOEHRINGER INGELHEIM PHARMACEUTICALS, INC.-2006-BP-07897AU

PATIENT
  Age: 94 Year
  Sex: Female

DRUGS (1)
  1. MICARDIS [Suspect]

REACTIONS (2)
  - HYPOTENSION [None]
  - LOWER RESPIRATORY TRACT INFECTION [None]
